FAERS Safety Report 5768621-1 (Version None)
Quarter: 2008Q2

REPORT INFORMATION
  Report Type: 
  Country: None (occurrence: None)
  Receive Date: 20080612
  Receipt Date: 20080308
  Transmission Date: 20081010
  Serious: No
  Sender: FDA-Public Use
  Company Number: US-ABBOTT-08P-163-0441711-00

PATIENT
  Sex: Female
  Weight: 57.204 kg

DRUGS (6)
  1. HUMIRA [Suspect]
     Indication: CROHN'S DISEASE
     Route: 058
     Dates: start: 20080222, end: 20080222
  2. HUMIRA [Suspect]
     Route: 058
  3. HUMIRA [Suspect]
     Route: 058
  4. PREDNISONE TAB [Concomitant]
     Indication: CROHN'S DISEASE
     Route: 048
  5. AZATHIOPRINE [Concomitant]
     Indication: CROHN'S DISEASE
     Route: 048
  6. FLUCONAZOLE [Concomitant]
     Indication: THROAT LESION
     Route: 048
     Dates: start: 20080309

REACTIONS (4)
  - ORAL INTAKE REDUCED [None]
  - PHARYNGOLARYNGEAL PAIN [None]
  - SKIN DISCOLOURATION [None]
  - THROAT LESION [None]
